FAERS Safety Report 8185627-6 (Version None)
Quarter: 2012Q1

REPORT INFORMATION
  Report Type: 
  Country: None (occurrence: None)
  Receive Date: 20120305
  Receipt Date: 20120221
  Transmission Date: 20120608
  Serious: Yes (Hospitalization)
  Sender: FDA-Public Use
  Company Number: IT-PFIZER INC-2012035462

PATIENT
  Age: 87 Year
  Sex: Female

DRUGS (11)
  1. REVATIO [Suspect]
     Indication: PULMONARY HYPERTENSION
     Dosage: 2 UNIT DOSE DAILY
     Route: 048
     Dates: start: 20080428
  2. COUMADIN [Concomitant]
     Indication: ATRIAL FIBRILLATION
     Dosage: UNK
  3. NEXIUM [Concomitant]
     Dosage: UNK
  4. ALIFLUS DISKUS [Concomitant]
     Dosage: UNK
  5. RAMIPRIL [Suspect]
     Indication: HYPERTENSION
     Dosage: 1.25 MG DAILY
     Route: 048
     Dates: start: 20050101, end: 20120116
  6. TAPAZOLE [Concomitant]
     Indication: HYPOTHYROIDISM
     Dosage: UNK
  7. SPIRIVA [Concomitant]
     Dosage: UNK
  8. LASIX [Suspect]
     Indication: PRODUCT USED FOR UNKNOWN INDICATION
     Dosage: 50 MG DAILY
     Route: 048
     Dates: start: 20050101, end: 20120116
  9. BISOPROLOL FUMARATE [Concomitant]
  10. MINITRAN [Suspect]
     Indication: PRODUCT USED FOR UNKNOWN INDICATION
     Dosage: 10 MG, DAILY
     Route: 062
     Dates: start: 20050101
  11. ALDACTONE [Suspect]
     Indication: PRODUCT USED FOR UNKNOWN INDICATION
     Dosage: 50 MG DAILY
     Route: 048
     Dates: start: 20050101

REACTIONS (1)
  - HYPOTENSION [None]
